FAERS Safety Report 4883841-6 (Version None)
Quarter: 2006Q1

REPORT INFORMATION
  Report Type: 
  Country: None (occurrence: None)
  Receive Date: 20060113
  Receipt Date: 20051227
  Transmission Date: 20060701
  Serious: Yes (Other)
  Sender: FDA-Public Use
  Company Number: US200512004201

PATIENT
  Age: 34 Year
  Sex: Male

DRUGS (4)
  1. STRATTERA [Suspect]
     Indication: ATTENTION DEFICIT/HYPERACTIVITY DISORDER
     Dosage: 160 MG DAILY 1/D
     Dates: start: 20030201
  2. VITAMIN E [Concomitant]
  3. FLAXSEED OIL (LINSEED OIL) [Concomitant]
  4. MULTIVITAMINS (ASCORBIC ACID, ERGOCALCIFEROL, FOLIC ACID, NICOTINAMIDE [Concomitant]

REACTIONS (10)
  - ABNORMAL BEHAVIOUR [None]
  - AGGRESSION [None]
  - ANOREXIA [None]
  - APATHY [None]
  - BLOOD TESTOSTERONE INCREASED [None]
  - EMOTIONAL DISORDER [None]
  - FEELING HOT [None]
  - INTENTIONAL OVERDOSE [None]
  - RAPID EYE MOVEMENTS SLEEP ABNORMAL [None]
  - SELF ESTEEM INFLATED [None]
